FAERS Safety Report 8489129-9 (Version None)
Quarter: 2012Q3

REPORT INFORMATION
  Report Type: 
  Country: None (occurrence: None)
  Receive Date: 20120705
  Receipt Date: 20120702
  Transmission Date: 20120928
  Serious: Yes (Hospitalization)
  Sender: FDA-Public Use
  Company Number: PHHY2012AU047315

PATIENT
  Sex: Female

DRUGS (1)
  1. CLOZARIL [Suspect]
     Dosage: 900 MG, UNK
     Dates: start: 20080812

REACTIONS (3)
  - SCHIZOPHRENIA [None]
  - THINKING ABNORMAL [None]
  - DELUSION [None]
